FAERS Safety Report 13883083 (Version 1)
Quarter: 2017Q3

REPORT INFORMATION
  Report Type: Spontaneous
  Country: US (occurrence: US)
  Receive Date: 20170818
  Receipt Date: 20170818
  Transmission Date: 20171127
  Serious: No
  Sender: FDA-Public Use
  Company Number: US-NEPHRON STERILE COMPOUNDING CENTER-2024793

PATIENT
  Sex: Female
  Weight: 60.91 kg

DRUGS (2)
  1. NEOSTIGMINE METHYLSULFATE. [Suspect]
     Active Substance: NEOSTIGMINE METHYLSULFATE
     Route: 042
     Dates: start: 20170811, end: 20170811
  2. ROCURONIUM [Concomitant]
     Active Substance: ROCURONIUM BROMIDE

REACTIONS (1)
  - Drug ineffective [Recovered/Resolved]

NARRATIVE: CASE EVENT DATE: 20170811
